FAERS Safety Report 4311616-5 (Version None)
Quarter: 2004Q1

REPORT INFORMATION
  Report Type: 
  Country: None (occurrence: None)
  Receive Date: 20040302
  Receipt Date: 20031118
  Transmission Date: 20041129
  Serious: No
  Sender: FDA-Public Use
  Company Number: 200328558BWH

PATIENT
  Age: 78 Year
  Sex: Male
  Weight: 87.9978 kg

DRUGS (11)
  1. LEVITRA [Suspect]
     Indication: ERECTILE DYSFUNCTION
     Dosage: 20 MG, TOTAL DAILY, ORAL
     Route: 048
     Dates: start: 20031101
  2. DILTIAZEM [Concomitant]
  3. INDAPAMIDE [Concomitant]
  4. METOPROLOL TARTRATE [Concomitant]
  5. COUMADIN [Concomitant]
  6. FLOMAX (BOEHRINGER INGELHIM) [Concomitant]
  7. PROSCAR [Concomitant]
  8. BEXTRA [Concomitant]
  9. DOXYCYCLINE [Concomitant]
  10. RESTASIS [Concomitant]
  11. VIAGRA [Concomitant]

REACTIONS (1)
  - ERECTILE DYSFUNCTION [None]
